FAERS Safety Report 5474151-7 (Version None)
Quarter: 2007Q3

REPORT INFORMATION
  Report Type: 
  Country: None (occurrence: None)
  Receive Date: 20070830
  Receipt Date: 20061002
  Transmission Date: 20080115
  Serious: Yes (Other)
  Sender: FDA-Public Use
  Company Number: 200618215US

PATIENT
  Age: 64 Year
  Sex: Female

DRUGS (5)
  1. LASIX [Suspect]
     Indication: FLUID RETENTION
     Dosage: 80 MG QD PO
     Route: 048
     Dates: start: 20050101, end: 20060601
  2. LASIX [Suspect]
     Indication: FLUID RETENTION
     Dosage: 40 MG QD PO
     Route: 048
     Dates: start: 20060601
  3. CELEBREX [Concomitant]
  4. BLOOD PRESSURE MEDICATION [Concomitant]
  5. ^MANY OTHERS^ (NOS) [Concomitant]

REACTIONS (2)
  - BLOOD CREATININE INCREASED [None]
  - BLOOD UREA INCREASED [None]
